FAERS Safety Report 4903700-X (Version None)
Quarter: 2006Q1

REPORT INFORMATION
  Report Type: 
  Country: None (occurrence: None)
  Receive Date: 20060208
  Receipt Date: 20060127
  Transmission Date: 20060701
  Serious: Yes (Hospitalization)
  Sender: FDA-Public Use
  Company Number: FR-SANOFI-SYNTHELABO-A02200600270

PATIENT
  Age: 63 Year
  Sex: Male

DRUGS (12)
  1. XATRAL [Suspect]
     Indication: DRUG USE FOR UNKNOWN INDICATION
     Route: 048
     Dates: start: 20051117
  2. TAXOTERE [Suspect]
     Indication: LUNG CANCER METASTATIC
     Dosage: UNK
     Route: 042
     Dates: start: 20050607
  3. SOPHIDONE [Suspect]
     Dosage: 10 UNIT
     Route: 048
     Dates: start: 20051121
  4. ZOMETA [Suspect]
     Route: 042
     Dates: start: 20050530
  5. LAROXYL [Suspect]
     Route: 048
     Dates: start: 20051125
  6. NEURONTIN [Concomitant]
     Dosage: UNK
     Route: 048
  7. CORTANCYL [Concomitant]
     Dosage: UNK
     Route: 048
  8. KARDEGIC [Concomitant]
     Dosage: UNK
     Route: 048
  9. ACETAMINOPHEN [Concomitant]
     Dosage: UNK
     Route: 048
  10. FORLAX [Concomitant]
     Dosage: UNK
     Route: 048
  11. NEXIUM [Concomitant]
     Dosage: UNK
     Route: 065
  12. MORPHINE [Concomitant]
     Dosage: UNK
     Route: 065

REACTIONS (2)
  - ARTHRALGIA [None]
  - OSTEONECROSIS [None]
